FAERS Safety Report 4474800-6 (Version None)
Quarter: 2004Q4

REPORT INFORMATION
  Report Type: 
  Country: None (occurrence: None)
  Receive Date: 20041012
  Receipt Date: 20041004
  Transmission Date: 20050328
  Serious: No
  Sender: FDA-Public Use
  Company Number: 2004UW20768

PATIENT
  Age: 56 Year
  Sex: Male

DRUGS (8)
  1. NEXIUM [Suspect]
     Dosage: 40 MG DAILY PO
     Route: 048
  2. GARAMYCIN OPHTHALMIC [Suspect]
     Dosage: 6 DF DAILY EYE
  3. ASAPHEN [Concomitant]
  4. AVANDIA [Concomitant]
  5. NOVO-GLYBURIDE [Concomitant]
  6. NOVO-METOPROLOL [Concomitant]
  7. VIOXX [Concomitant]
  8. ZOCOR [Concomitant]

REACTIONS (4)
  - FACE OEDEMA [None]
  - GINGIVAL SWELLING [None]
  - PRURITUS [None]
  - TONGUE OEDEMA [None]
